FAERS Safety Report 6251273-4 (Version None)
Quarter: 2009Q2

REPORT INFORMATION
  Report Type: 
  Country: None (occurrence: None)
  Receive Date: 20090630
  Receipt Date: 20090612
  Transmission Date: 20091009
  Serious: Yes (Disabling, Other)
  Sender: FDA-Public Use
  Company Number: DE-B.I. PHARMACEUTICALS,INC./RIDGEFIELD-2008-DE-03911DE

PATIENT
  Sex: Male

DRUGS (9)
  1. SPIRIVA [Suspect]
     Dosage: 18 MCG
     Route: 055
     Dates: start: 20080606, end: 20080625
  2. CAPTOPRIL [Suspect]
     Dosage: 150 MG
  3. BELOK-ZOK [Suspect]
     Dosage: 95 MG
  4. PROMETAZIN [Concomitant]
     Dosage: 28 ANZ
  5. DERMOXIN [Concomitant]
     Dosage: IF REQUIRED
  6. MAGNESIUM SULFATE [Concomitant]
     Dosage: 3 ANZ
  7. SAGE TEE [Concomitant]
     Dosage: 1 ANZ
  8. VITALIS VITAMINE TABLETS [Concomitant]
     Dosage: 1 ANZ
  9. SYMBICORT [Concomitant]
     Dosage: 2 ANZ

REACTIONS (12)
  - ARRHYTHMIA [None]
  - BLOOD PRESSURE ABNORMAL [None]
  - DIHYDROTESTOSTERONE DECREASED [None]
  - DRY MOUTH [None]
  - DYSPHAGIA [None]
  - ERECTILE DYSFUNCTION [None]
  - HEART RATE DECREASED [None]
  - HEART RATE INCREASED [None]
  - HEART RATE IRREGULAR [None]
  - LIBIDO DECREASED [None]
  - PHARYNGEAL ERYTHEMA [None]
  - SLEEP DISORDER [None]
